FAERS Safety Report 16174589 (Version 1)
Quarter: 2019Q2

REPORT INFORMATION
  Report Type: Spontaneous
  Country: IS (occurrence: IS)
  Receive Date: 20190409
  Receipt Date: 20190409
  Transmission Date: 20190711
  Serious: Yes (Life-Threatening)
  Sender: FDA-Public Use
  Company Number: IS-TEVA-2019-IS-1034154

PATIENT
  Age: 40 Year
  Sex: Male

DRUGS (5)
  1. ESOMEPRAZOL KRKA 20 MG MAGASYRUBOLIN HARD HYLKI [Concomitant]
  2. METOPROLOL RATIOPHARM 47,5 MG FORDATOFLUR [Concomitant]
     Dosage: PROLONGED RELEASE
     Dates: start: 201901
  3. CARDOSIN RETARD 4 MG FORDATOFLUR [Suspect]
     Active Substance: DOXAZOSIN MESYLATE
     Indication: HYPERTENSION
     Dosage: PROLONGED RELEASE
     Dates: start: 2017, end: 2018
  4. PRESMIN COMBO 100 MG/25 MG FILMUHUDADAR TOFLUR [Concomitant]
  5. ESOPRAM 10 MG FILMUHUDADAR TOFLUR [Concomitant]

REACTIONS (4)
  - Angioedema [Recovered/Resolved]
  - Swelling face [Recovered/Resolved]
  - Swollen tongue [Recovered/Resolved]
  - Dysphoria [Recovered/Resolved]

NARRATIVE: CASE EVENT DATE: 201808
